FAERS Safety Report 8564841-1 (Version None)
Quarter: 2012Q3

REPORT INFORMATION
  Report Type: 
  Country: None (occurrence: None)
  Receive Date: 20120803
  Receipt Date: 20120726
  Transmission Date: 20120928
  Serious: Yes (Other)
  Sender: FDA-Public Use
  Company Number: US-ELI_LILLY_AND_COMPANY-US201207008775

PATIENT
  Sex: Female

DRUGS (9)
  1. FOLIC ACID [Concomitant]
     Dosage: 1 MG, UNK
  2. METHOTREXATE [Concomitant]
     Dosage: 2.5 MG, UNK
  3. PREDNISONE [Concomitant]
     Dosage: 10 MG, UNK
  4. VALIUM [Concomitant]
     Dosage: 4 MG, UNK
  5. LEVOTHROID [Concomitant]
     Dosage: 125 UG, UNK
  6. FORTEO [Suspect]
     Indication: OSTEOPOROSIS
     Dosage: 20 UG, QD
  7. LISINOPRIL [Concomitant]
     Dosage: 20 MG, UNK
  8. COUMADIN [Concomitant]
     Dosage: 4 MG, UNK
  9. VICODIN [Concomitant]
     Dosage: UNK

REACTIONS (1)
  - ANAEMIA [None]
